FAERS Safety Report 8698313 (Version 2)
Quarter: 2013Q3

REPORT INFORMATION
  Report Type: Report from Study
  Country: IN (occurrence: IN)
  Receive Date: 20120802
  Receipt Date: 20130925
  Transmission Date: 20140515
  Serious: Yes (Other)
  Sender: FDA-Public Use
  Company Number: PHHY2012IN060483

PATIENT
  Age: 34 Year
  Sex: Female

DRUGS (1)
  1. GLIVEC [Suspect]
     Indication: CHRONIC MYELOID LEUKAEMIA
     Dosage: 400 MG, UNK

REACTIONS (4)
  - Upper limb fracture [Unknown]
  - Fall [Unknown]
  - Nasopharyngitis [Unknown]
  - Influenza [Unknown]
